FAERS Safety Report 9014222 (Version 1)
Quarter: 2013Q1

REPORT INFORMATION
  Report Type: Spontaneous
  Country: US (occurrence: US)
  Receive Date: 20130115
  Receipt Date: 20130115
  Transmission Date: 20140127
  Serious: Yes (Other)
  Sender: FDA-Public Use
  Company Number: US-009507513-1301USA003569

PATIENT
  Age: 11 Year
  Sex: Male

DRUGS (1)
  1. SINGULAIR [Suspect]
     Indication: ASTHMA
     Dosage: 5 MG, DAILY PO
     Route: 048

REACTIONS (4)
  - Tearfulness [Unknown]
  - Insomnia [Unknown]
  - Hypophagia [Unknown]
  - Depression [Unknown]
